FAERS Safety Report 9303641 (Version 1)
Quarter: 2013Q2

REPORT INFORMATION
  Report Type: Spontaneous
  Country: CL (occurrence: CL)
  Receive Date: 20130522
  Receipt Date: 20130522
  Transmission Date: 20140414
  Serious: Yes (Other)
  Sender: FDA-Public Use
  Company Number: CL-JNJFOC-20130512602

PATIENT
  Age: 61 Year
  Sex: Female

DRUGS (4)
  1. SIMPONI [Suspect]
     Indication: PRODUCT USED FOR UNKNOWN INDICATION
     Route: 058
     Dates: start: 20130508
  2. SIMPONI [Suspect]
     Indication: PRODUCT USED FOR UNKNOWN INDICATION
     Route: 058
     Dates: start: 20130409
  3. CORTISONE [Concomitant]
     Route: 065
  4. AZACORTID [Concomitant]
     Route: 065

REACTIONS (2)
  - Hypotension [Recovered/Resolved]
  - Nausea [Recovered/Resolved]
